FAERS Safety Report 8844675 (Version 1)
Quarter: 2012Q4

REPORT INFORMATION
  Report Type: Spontaneous
  Country: US (occurrence: None)
  Receive Date: 20121012
  Receipt Date: 20121012
  Transmission Date: 20130627
  Serious: Yes (Death, Other)
  Sender: FDA-Public Use
  Company Number: VAL_00906_2012

PATIENT
  Sex: Female

DRUGS (4)
  1. PARLODEL [Suspect]
     Indication: PRODUCT USED FOR UNKNOWN INDICATION
     Dosage: 2 weeks 1 day until continuing
  2. METHERGINE [Suspect]
     Indication: HEMORRHAGE IN PREGNANCY
     Route: 042
  3. METHERGINE [Suspect]
     Indication: HEMORRHAGE IN PREGNANCY
     Route: 030
  4. LASIX /00032601/ [Concomitant]

REACTIONS (8)
  - Blood pressure increased [None]
  - Maternal exposure during delivery [None]
  - Convulsion [None]
  - Loss of consciousness [None]
  - Anaemia [None]
  - Hyperglycaemia [None]
  - Hepatic enzyme increased [None]
  - Arrhythmia [None]
